FAERS Safety Report 8494296-7 (Version None)
Quarter: 2012Q3

REPORT INFORMATION
  Report Type: 
  Country: None (occurrence: None)
  Receive Date: 20120709
  Receipt Date: 20120627
  Transmission Date: 20120928
  Serious: Yes (Other)
  Sender: FDA-Public Use
  Company Number: JP-VERTEX PHARMACEUTICALS INC.-AE-2012-009730

PATIENT
  Age: 59 Year
  Sex: Male

DRUGS (9)
  1. TELAVIC (TELAPREVIR) [Suspect]
     Route: 048
     Dates: start: 20120516, end: 20120519
  2. RIBAVIRIN [Concomitant]
     Route: 048
     Dates: start: 20120516, end: 20120523
  3. TALION [Concomitant]
     Route: 048
     Dates: start: 20120502, end: 20120523
  4. ALLOPURINOL [Concomitant]
     Route: 048
     Dates: start: 20120509
  5. RIBAVIRIN [Concomitant]
     Route: 048
     Dates: start: 20120502, end: 20120509
  6. URSO 250 [Concomitant]
     Route: 048
  7. TELAVIC (TELAPREVIR) [Suspect]
     Indication: HEPATITIS C
     Route: 048
     Dates: start: 20120502, end: 20120509
  8. ALFAROL [Concomitant]
     Route: 048
     Dates: start: 20120502, end: 20120523
  9. PEGINTERFERON ALFA-2B [Concomitant]
     Route: 058
     Dates: start: 20120502, end: 20120523

REACTIONS (2)
  - RENAL IMPAIRMENT [None]
  - HYPERURICAEMIA [None]
